FAERS Safety Report 15982204 (Version 1)
Quarter: 2019Q1

REPORT INFORMATION
  Report Type: Spontaneous
  Country: IE (occurrence: IE)
  Receive Date: 20190219
  Receipt Date: 20190219
  Transmission Date: 20190418
  Serious: Yes (Life-Threatening, Hospitalization, Disabling)
  Sender: FDA-Public Use
  Company Number: IE-PFIZER INC-2019070470

PATIENT
  Age: 51 Year
  Sex: Male
  Weight: 100 kg

DRUGS (2)
  1. EFEXOR XL [Suspect]
     Active Substance: VENLAFAXINE HYDROCHLORIDE
     Dosage: UNK
     Dates: start: 20160605
  2. EFEXOR XL [Suspect]
     Active Substance: VENLAFAXINE HYDROCHLORIDE
     Dosage: 300 MG, UNK
     Dates: end: 20170517

REACTIONS (7)
  - Decreased interest [Not Recovered/Not Resolved]
  - Tinnitus [Not Recovered/Not Resolved]
  - Suicidal ideation [Not Recovered/Not Resolved]
  - Paraesthesia [Not Recovered/Not Resolved]
  - Restless legs syndrome [Not Recovered/Not Resolved]
  - Emotional poverty [Not Recovered/Not Resolved]
  - Disinhibition [Not Recovered/Not Resolved]

NARRATIVE: CASE EVENT DATE: 20161114
